FAERS Safety Report 12098319 (Version 1)
Quarter: 2016Q1

REPORT INFORMATION
  Report Type: Report from Study
  Country: BR (occurrence: BR)
  Receive Date: 20160222
  Receipt Date: 20160222
  Transmission Date: 20160526
  Serious: Yes (Hospitalization, Other)
  Sender: FDA-Public Use
  Company Number: BR-ROCHE-1564043

PATIENT
  Age: 28 Year
  Sex: Male

DRUGS (1)
  1. MABTHERA [Suspect]
     Active Substance: RITUXIMAB
     Indication: RHEUMATOID ARTHRITIS
     Dosage: MOAST RECENT DOSE ON 15/MAY/2015
     Route: 042
     Dates: start: 20140821

REACTIONS (5)
  - Furuncle [Recovering/Resolving]
  - Bacterial infection [Recovering/Resolving]
  - Throat tightness [Unknown]
  - Weight decreased [Unknown]
  - Pharyngitis [Recovering/Resolving]

NARRATIVE: CASE EVENT DATE: 201503
